FAERS Safety Report 9944283 (Version 1)
Quarter: 2014Q1

REPORT INFORMATION
  Report Type: Report from Study
  Country: US (occurrence: US)
  Receive Date: 20140303
  Receipt Date: 20140303
  Transmission Date: 20141002
  Serious: No
  Sender: FDA-Public Use
  Company Number: US-ABBVIE-13P-163-1055975-00

PATIENT
  Age: 42 Year
  Sex: Female
  Weight: 102.15 kg

DRUGS (8)
  1. HUMIRA [Suspect]
     Indication: RHEUMATOID ARTHRITIS
     Dosage: INITIAL DOSE
     Dates: start: 20130222
  2. PLAQUINELL [Concomitant]
     Indication: RHEUMATOID ARTHRITIS
  3. DICLOFENAC [Concomitant]
     Indication: RHEUMATOID ARTHRITIS
  4. LASIX [Concomitant]
     Indication: FLUID RETENTION
  5. POTASSIUM [Concomitant]
     Indication: PRODUCT USED FOR UNKNOWN INDICATION
  6. MIRAPEX [Concomitant]
     Indication: RESTLESS LEGS SYNDROME
  7. VITAMIN B12 [Concomitant]
     Indication: HYPOVITAMINOSIS
  8. VITAMIN D [Concomitant]
     Indication: HYPOVITAMINOSIS

REACTIONS (2)
  - Crying [Recovered/Resolved]
  - Nausea [Recovered/Resolved]
